FAERS Safety Report 8830457 (Version 5)
Quarter: 2013Q1

REPORT INFORMATION
  Report Type: Spontaneous
  Country: JP (occurrence: JP)
  Receive Date: 20121009
  Receipt Date: 20130120
  Transmission Date: 20140127
  Serious: Yes (Hospitalization, Other)
  Sender: FDA-Public Use
  Company Number: JP-BRISTOL-MYERS SQUIBB COMPANY-17020256

PATIENT
  Age: 1 Day
  Sex: Female

DRUGS (2)
  1. ABILIFY TABS [Suspect]
     Dosage: DOSE REDUCED TO 3MG/D,(27MAR12-ONG) THEN TO ALTERNATE DAYS(29NOV11-26MAR12-119D) ON LAST TRIMESTER
     Route: 064
     Dates: start: 200903
  2. ABILIFY DISCMELT TABS [Suspect]
     Route: 064
     Dates: end: 20111128

REACTIONS (1)
  - Branchiogenic syndrome [Not Recovered/Not Resolved]
